FAERS Safety Report 6756052-7 (Version None)
Quarter: 2010Q2

REPORT INFORMATION
  Report Type: 
  Country: None (occurrence: None)
  Receive Date: 20100604
  Receipt Date: 20100527
  Transmission Date: 20101027
  Serious: Yes (Hospitalization)
  Sender: FDA-Public Use
  Company Number: AU-SANOFI-AVENTIS-2010SA009215

PATIENT
  Age: 57 Year
  Sex: Male

DRUGS (11)
  1. LANTUS [Suspect]
     Route: 058
     Dates: start: 20071120
  2. AUTOPEN 24 [Suspect]
  3. DIAFORMIN [Concomitant]
  4. ENALAPRIL MALEATE [Concomitant]
  5. ZYPREXA [Concomitant]
  6. VALPROATE SODIUM [Concomitant]
  7. IRON [Concomitant]
  8. CALTRATE [Concomitant]
  9. ALL OTHER THERAPEUTIC PRODUCTS [Concomitant]
  10. NICABATE [Concomitant]
  11. TEMAZEPAM [Concomitant]

REACTIONS (2)
  - DEPRESSION [None]
  - HYPERGLYCAEMIA [None]
